FAERS Safety Report 18307730 (Version 1)
Quarter: 2020Q3

REPORT INFORMATION
  Report Type: Spontaneous
  Country: GB (occurrence: GB)
  Receive Date: 20200924
  Receipt Date: 20200924
  Transmission Date: 20201103
  Serious: Yes (Other)
  Sender: FDA-Public Use
  Company Number: GB-MYLANLABS-2020M1080264

PATIENT
  Age: 74 Year
  Sex: Male

DRUGS (2)
  1. GAVISCON ADVANCE                   /01340901/ [Concomitant]
     Indication: REFLUX LARYNGITIS
     Dosage: UNK
  2. NORTRIPTYLINE [Suspect]
     Active Substance: NORTRIPTYLINE
     Indication: INSOMNIA
     Dosage: UNK

REACTIONS (5)
  - Disorientation [Recovered/Resolved]
  - Agitation [Recovered/Resolved]
  - Productive cough [Recovering/Resolving]
  - Urinary incontinence [Unknown]
  - Gastrooesophageal reflux disease [Recovering/Resolving]
